FAERS Safety Report 15720281 (Version 1)
Quarter: 2018Q4

REPORT INFORMATION
  Report Type: Spontaneous
  Country: US (occurrence: US)
  Receive Date: 20181213
  Receipt Date: 20181213
  Transmission Date: 20190205
  Serious: Yes (Hospitalization)
  Sender: FDA-Public Use
  Company Number: US-TEVA-2018-US-986414

PATIENT
  Age: 37 Year
  Sex: Female

DRUGS (3)
  1. MORPHINE [Suspect]
     Active Substance: MORPHINE
     Indication: BREAKTHROUGH PAIN
     Dosage: 300 MILLIGRAM DAILY; 300 MG OF MORPHINE EQUIVALENTS WITH UP TO 450 MG OF ADDITIONAL MORPHINE AS NEED
     Route: 065
  2. MORPHINE [Suspect]
     Active Substance: MORPHINE
     Dosage: 330 MILLIGRAM DAILY; 330 MG OF MORPHINE EQUIVALENTS
     Route: 065
  3. MORPHINE [Suspect]
     Active Substance: MORPHINE
     Indication: SICKLE CELL ANAEMIA WITH CRISIS
     Dosage: 334 MILLIGRAM DAILY; 334 MG OF MORPHINE EQUIVALENTS
     Route: 065

REACTIONS (1)
  - Hyperaesthesia [Recovered/Resolved]
